FAERS Safety Report 6470098-8 (Version None)
Quarter: 2009Q4

REPORT INFORMATION
  Report Type: 
  Country: None (occurrence: None)
  Receive Date: 20091203
  Receipt Date: 20091124
  Transmission Date: 20100525
  Serious: Yes (Life-Threatening, Hospitalization)
  Sender: FDA-Public Use
  Company Number: DE-WYE-H08666909

PATIENT
  Age: 78 Year
  Sex: Male

DRUGS (10)
  1. AMIODARONE HYDROCHLORIDE [Interacting]
     Indication: ATRIAL FIBRILLATION
     Route: 048
     Dates: start: 19980101, end: 20090102
  2. TRAMADOL HCL [Suspect]
     Indication: PAIN
     Route: 048
     Dates: start: 20080901, end: 20090101
  3. ZOLPIDEM TARTRATE [Suspect]
     Indication: SLEEP DISORDER
     Route: 048
     Dates: start: 20050101, end: 20090101
  4. XIPAMIDE [Concomitant]
     Indication: HYPERTENSION
     Route: 048
     Dates: start: 20000101
  5. LACTULOSE [Concomitant]
     Indication: CONSTIPATION
     Route: 048
     Dates: start: 20080901, end: 20090102
  6. FALITHROM [Concomitant]
     Indication: THROMBOSIS PROPHYLAXIS
     Route: 048
     Dates: start: 20080801, end: 20090102
  7. SIMVASTATIN [Concomitant]
     Indication: DYSLIPIDAEMIA
     Route: 048
     Dates: start: 20000101
  8. TORSEMIDE [Concomitant]
     Indication: HYPERTENSION
     Route: 048
     Dates: start: 20000101
  9. ZOPICLONE [Interacting]
     Indication: RESTLESSNESS
     Dosage: 7.5 MG; ONE DOSE
     Route: 048
     Dates: start: 20090102, end: 20090102
  10. METOPROLOL TARTRATE [Concomitant]
     Indication: HYPERTENSION
     Route: 048
     Dates: start: 20000101

REACTIONS (4)
  - ACUTE RESPIRATORY FAILURE [None]
  - DRUG INTERACTION [None]
  - SOMNOLENCE [None]
  - UNRESPONSIVE TO STIMULI [None]
